FAERS Safety Report 11371668 (Version 1)
Quarter: 2015Q3

REPORT INFORMATION
  Report Type: Report from Study
  Country: CA (occurrence: CA)
  Receive Date: 20150812
  Receipt Date: 20150812
  Transmission Date: 20151125
  Serious: Yes (Other)
  Sender: FDA-Public Use
  Company Number: CA-JNJFOC-20150103768

PATIENT
  Age: 34 Year
  Sex: Female
  Weight: 99.9 kg

DRUGS (1)
  1. REMICADE [Suspect]
     Active Substance: INFLIXIMAB
     Indication: CROHN^S DISEASE
     Route: 042
     Dates: start: 20140826

REACTIONS (7)
  - Dural tear [Recovered/Resolved]
  - Abdominal pain [Unknown]
  - Dysphagia [Recovered/Resolved]
  - General physical health deterioration [Unknown]
  - Haemorrhage [Unknown]
  - Post procedural complication [Unknown]
  - Paraesthesia [Unknown]

NARRATIVE: CASE EVENT DATE: 201410
